FAERS Safety Report 16949721 (Version 1)
Quarter: 2019Q4

REPORT INFORMATION
  Report Type: Spontaneous
  Country: CA (occurrence: CA)
  Receive Date: 20191023
  Receipt Date: 20191023
  Transmission Date: 20200122
  Serious: Yes (Other)
  Sender: FDA-Public Use
  Company Number: CA-TEVA-2019-CA-1124621

PATIENT
  Age: 58 Year
  Sex: Female

DRUGS (13)
  1. VALPROIC ACID. [Suspect]
     Active Substance: VALPROIC ACID
     Indication: STATUS EPILEPTICUS
     Route: 065
  2. ISOFLURANE. [Suspect]
     Active Substance: ISOFLURANE
     Indication: STATUS EPILEPTICUS
     Route: 055
  3. PHENOBARBITAL. [Suspect]
     Active Substance: PHENOBARBITAL
     Indication: STATUS EPILEPTICUS
     Dosage: 300 MILLIGRAM DAILY;
     Route: 065
  4. TEGRETOL [Concomitant]
     Active Substance: CARBAMAZEPINE
     Indication: PRODUCT USED FOR UNKNOWN INDICATION
  5. MIDAZOLAM [Suspect]
     Active Substance: MIDAZOLAM HYDROCHLORIDE
     Indication: STATUS EPILEPTICUS
     Route: 065
  6. LEVETIRACETAM. [Suspect]
     Active Substance: LEVETIRACETAM
     Indication: STATUS EPILEPTICUS
     Route: 065
  7. PHENYTOIN. [Suspect]
     Active Substance: PHENYTOIN
     Indication: SEIZURE
  8. METHYLPREDNISOLONE. [Suspect]
     Active Substance: METHYLPREDNISOLONE
     Indication: PRODUCT USED FOR UNKNOWN INDICATION
     Route: 042
  9. PHENYTOIN. [Suspect]
     Active Substance: PHENYTOIN
     Indication: STATUS EPILEPTICUS
     Route: 065
  10. PROPOFOL. [Suspect]
     Active Substance: PROPOFOL
     Indication: STATUS EPILEPTICUS
     Dosage: 300 MILLIGRAM DAILY;
     Route: 065
  11. KETAMINE [Suspect]
     Active Substance: KETAMINE
     Indication: STATUS EPILEPTICUS
     Route: 065
  12. TAZOBACTAM [Concomitant]
     Active Substance: TAZOBACTAM
     Indication: APPENDICITIS
  13. PIPERACILLIN. [Concomitant]
     Active Substance: PIPERACILLIN SODIUM
     Indication: APPENDICITIS
     Route: 065

REACTIONS (11)
  - Cardiomegaly [Recovered/Resolved]
  - Hypotension [Recovered/Resolved]
  - Intestinal ischaemia [Recovered/Resolved]
  - Drug ineffective [Recovered/Resolved]
  - Intestinal perforation [Recovered/Resolved]
  - Systemic inflammatory response syndrome [Recovered/Resolved]
  - Left ventricular hypertrophy [Recovered/Resolved]
  - Pneumatosis [Recovered/Resolved]
  - Exposure during pregnancy [Recovered/Resolved]
  - Necrosis ischaemic [Recovered/Resolved]
  - Intra-abdominal pressure increased [Recovered/Resolved]
